FAERS Safety Report 11396623 (Version 1)
Quarter: 2015Q3

REPORT INFORMATION
  Report Type: Report from Study
  Country: AT (occurrence: AT)
  Receive Date: 20150819
  Receipt Date: 20150819
  Transmission Date: 20151125
  Serious: Yes (Hospitalization, Other)
  Sender: FDA-Public Use
  Company Number: AT-GLAXOSMITHKLINE INC.-AT2015GSK111488

PATIENT
  Age: 67 Year
  Sex: Female
  Weight: 66 kg

DRUGS (4)
  1. TRAMETINIB [Suspect]
     Active Substance: TRAMETINIB
     Indication: METASTATIC MALIGNANT MELANOMA
     Dosage: 2 MG, QD
     Route: 048
  2. DABRAFENIB [Suspect]
     Active Substance: DABRAFENIB
     Indication: METASTATIC MALIGNANT MELANOMA
     Dosage: 75 MG, BID
     Route: 048
  3. TRAMETINIB [Suspect]
     Active Substance: TRAMETINIB
     Dosage: UNK
     Dates: start: 20150630
  4. DABRAFENIB [Suspect]
     Active Substance: DABRAFENIB
     Dosage: UNK
     Dates: start: 20150630

REACTIONS (4)
  - Adverse event [Unknown]
  - Sialoadenitis [Unknown]
  - General physical health deterioration [Unknown]
  - Vertigo [Recovered/Resolved]

NARRATIVE: CASE EVENT DATE: 20150726
